FAERS Safety Report 7774209-3 (Version None)
Quarter: 2011Q3

REPORT INFORMATION
  Report Type: 
  Country: None (occurrence: None)
  Receive Date: 20110923
  Receipt Date: 20110916
  Transmission Date: 20111222
  Serious: Yes (Death, Hospitalization)
  Sender: FDA-Public Use
  Company Number: US-AMGEN-USACT2011006818

PATIENT
  Age: 75 Year
  Sex: Male
  Weight: 64.5 kg

DRUGS (10)
  1. FLOMAX [Concomitant]
     Dosage: 0.4 MG, UNK
  2. PREVACID [Concomitant]
     Dosage: 30 MG, UNK
  3. CISPLATIN [Concomitant]
     Dosage: UNK
     Dates: start: 20100501, end: 20110426
  4. XOPENEX [Concomitant]
     Route: 055
  5. METOPROLOL SUCCINATE [Concomitant]
     Dosage: 12.5 MG, UNK
  6. LOVENOX [Concomitant]
     Dosage: UNK
  7. DOCETAXEL [Concomitant]
     Dosage: UNK
     Route: 042
     Dates: start: 20100501, end: 20110426
  8. ROXICET [Concomitant]
     Route: 048
  9. PANITUMUMAB [Suspect]
     Indication: OESOPHAGEAL ADENOCARCINOMA
     Dosage: UNK
     Dates: start: 20100501, end: 20110426
  10. LASIX [Concomitant]
     Dosage: UNK
     Route: 048

REACTIONS (4)
  - LUNG INFECTION [None]
  - UPPER RESPIRATORY TRACT INFECTION [None]
  - DYSPNOEA [None]
  - ASPIRATION [None]
